FAERS Safety Report 25442823 (Version 2)
Quarter: 2025Q2

REPORT INFORMATION
  Report Type: Spontaneous
  Country: US (occurrence: US)
  Receive Date: 20250617
  Receipt Date: 20250624
  Transmission Date: 20250716
  Serious: No
  Sender: SANOFI AVENTIS
  Company Number: US-SANOFI-02555018

PATIENT
  Age: 52 Year
  Sex: Female

DRUGS (2)
  1. TOUJEO [Suspect]
     Active Substance: INSULIN GLARGINE
     Indication: Diabetes mellitus
     Dosage: 16 IU, QD
     Dates: end: 202506
  2. TOUJEO [Suspect]
     Active Substance: INSULIN GLARGINE
     Dates: start: 202506

REACTIONS (4)
  - Blood glucose increased [Recovering/Resolving]
  - Drug dose omission by device [Recovering/Resolving]
  - Device issue [Unknown]
  - Intentional product misuse [Unknown]

NARRATIVE: CASE EVENT DATE: 20250601
